FAERS Safety Report 10261138 (Version 2)
Quarter: 2014Q4

REPORT INFORMATION
  Report Type: Spontaneous
  Country: US (occurrence: None)
  Receive Date: 20140623
  Receipt Date: 20141124
  Transmission Date: 20150528
  Serious: Yes (Life-Threatening, Hospitalization)
  Sender: FDA-Public Use
  Company Number: 20140340

PATIENT
  Age: 89 Year
  Sex: Female
  Weight: 89 kg

DRUGS (21)
  1. GRANUFLO [Suspect]
     Active Substance: ACETIC ACID\SODIUM ACETATE
  2. OXYCODONE [Concomitant]
     Active Substance: OXYCODONE
  3. CHOLECALCIFEROL [Concomitant]
     Active Substance: CHOLECALCIFEROL
  4. UNSPECIFIED [Suspect]
     Active Substance: UNSPECIFIED INGREDIENT
  5. NEPHROCAPS [Concomitant]
     Active Substance: ASCORBIC ACID\BIOTIN\CYANOCOBALAMIN\FOLIC ACID\NIACIN\PANTOTHENIC ACID\PYRIDOXINE\RIBOFLAVIN\THIAMINE
  6. VITAMIN D [Concomitant]
     Active Substance: CHOLECALCIFEROL
  7. VENOFER [Suspect]
     Active Substance: IRON SUCROSE
     Indication: CHRONIC KIDNEY DISEASE
     Dosage: 100 IVP 3X WEEK
     Route: 042
     Dates: start: 20140210
  8. NATURALYTE [Suspect]
     Active Substance: ACETIC ACID\SODIUM ACETATE
  9. UNSPECIFIED [Suspect]
     Active Substance: UNSPECIFIED INGREDIENT
  10. WARFARIN  (COUDADIN) [Concomitant]
  11. METOPROLOL [Concomitant]
     Active Substance: METOPROLOL
  12. LEVOTHYROXINE [Concomitant]
     Active Substance: LEVOTHYROXINE
  13. COLACE (DOCUSATE) [Concomitant]
  14. SIMVASTATIN. [Concomitant]
     Active Substance: SIMVASTATIN
  15. AMLODIPINE [Concomitant]
     Active Substance: AMLODIPINE BESYLATE
  16. PANTOPRAZOLE [Concomitant]
     Active Substance: PANTOPRAZOLE SODIUM
  17. SALINE [Suspect]
     Active Substance: SODIUM CHLORIDE
     Indication: PRODUCT USED FOR UNKNOWN INDICATION
  18. CALCITROL [Concomitant]
     Active Substance: CALCITRIOL
  19. NOVOLOG [Concomitant]
     Active Substance: INSULIN ASPART
  20. ERYTHROPOIETIN [Concomitant]
     Active Substance: ERYTHROPOIETIN
  21. ASPIRIN (ACETYLSALICYLIC ACID) [Concomitant]
     Active Substance: ASPIRIN

REACTIONS (14)
  - Cardiac arrest [None]
  - Systemic inflammatory response syndrome [None]
  - Thrombocytopenia [None]
  - Hyperhidrosis [None]
  - Device issue [None]
  - Carotid artery stenosis [None]
  - Hypotension [None]
  - Nausea [None]
  - Syncope [None]
  - Arterial disorder [None]
  - Haemodialysis complication [None]
  - Urinary tract infection enterococcal [None]
  - Atrial fibrillation [None]
  - Device dislocation [None]

NARRATIVE: CASE EVENT DATE: 20140210
